FAERS Safety Report 10602559 (Version 2)
Quarter: 2014Q4

REPORT INFORMATION
  Report Type: Spontaneous
  Country: JP (occurrence: JP)
  Receive Date: 20141124
  Receipt Date: 20141204
  Transmission Date: 20150529
  Serious: Yes (Disabling)
  Sender: FDA-Public Use
  Company Number: JP-JNJFOC-20141113572

PATIENT
  Age: 65 Year
  Sex: Female

DRUGS (3)
  1. SOVRIAD [Suspect]
     Active Substance: SIMEPREVIR
     Indication: PRODUCT USED FOR UNKNOWN INDICATION
     Route: 048
     Dates: start: 20140602, end: 20140818
  2. PEGASYS [Concomitant]
     Active Substance: PEGINTERFERON ALFA-2A
     Route: 058
     Dates: start: 20140602, end: 20141110
  3. COPEGUS [Concomitant]
     Active Substance: RIBAVIRIN
     Route: 048
     Dates: start: 20140602, end: 20141110

REACTIONS (1)
  - Cerebral haemorrhage [Not Recovered/Not Resolved]

NARRATIVE: CASE EVENT DATE: 20141113
